FAERS Safety Report 11205700 (Version 1)
Quarter: 2015Q2

REPORT INFORMATION
  Report Type: Spontaneous
  Country: US (occurrence: None)
  Receive Date: 20150618
  Receipt Date: 20150618
  Transmission Date: 20150821
  Serious: Yes (Hospitalization, Other)
  Sender: FDA-Public Use
  Company Number: None

PATIENT
  Age: 50 Year
  Sex: Male

DRUGS (2)
  1. REYATAZ [Suspect]
     Active Substance: ATAZANAVIR SULFATE
     Indication: HIV INFECTION
     Route: 048
     Dates: start: 200902
  2. COREG [Concomitant]
     Active Substance: CARVEDILOL

REACTIONS (2)
  - Hypertension [None]
  - Myocardial infarction [None]

NARRATIVE: CASE EVENT DATE: 20150601
